FAERS Safety Report 13071653 (Version 1)
Quarter: 2016Q4

REPORT INFORMATION
  Report Type: Spontaneous
  Country: US (occurrence: US)
  Receive Date: 20161228
  Receipt Date: 20161228
  Transmission Date: 20170207
  Serious: No
  Sender: FDA-Public Use
  Company Number: None

PATIENT
  Age: 55 Year
  Sex: Female

DRUGS (1)
  1. HARVONI [Suspect]
     Active Substance: LEDIPASVIR\SOFOSBUVIR
     Indication: HEPATITIS C

REACTIONS (7)
  - Headache [None]
  - Influenza like illness [None]
  - Hot flush [None]
  - Alopecia [None]
  - Arthralgia [None]
  - Fatigue [None]
  - Insomnia [None]

NARRATIVE: CASE EVENT DATE: 20161228
